FAERS Safety Report 11120346 (Version 1)
Quarter: 2015Q2

REPORT INFORMATION
  Report Type: Report from Study
  Country: AU (occurrence: AU)
  Receive Date: 20150518
  Receipt Date: 20150518
  Transmission Date: 20150821
  Serious: Yes (Hospitalization)
  Sender: FDA-Public Use
  Company Number: PHHY2015AU047478

PATIENT
  Age: 38 Year
  Sex: Female

DRUGS (6)
  1. CLOZARIL [Suspect]
     Active Substance: CLOZAPINE
     Indication: SCHIZOPHRENIA
     Dosage: 150 MG, QD (NOCTE) LONG TERM
     Route: 048
     Dates: start: 20131209
  2. CLOZARIL [Suspect]
     Active Substance: CLOZAPINE
     Dosage: 175 MG, QD (NOCTE)
     Route: 048
     Dates: start: 20150224
  3. SODIUM VALPROATE [Concomitant]
     Active Substance: VALPROATE SODIUM
     Indication: PRODUCT USED FOR UNKNOWN INDICATION
     Dosage: 500 MG, BID, LONG TERM
     Route: 048
  4. KETOPROFEN. [Concomitant]
     Active Substance: KETOPROFEN
     Indication: PRODUCT USED FOR UNKNOWN INDICATION
     Dosage: 200 MG, QD (NOCTE), LONG TERM
     Route: 048
  5. ESCITALOPRAM [Concomitant]
     Active Substance: ESCITALOPRAM OXALATE
     Indication: PRODUCT USED FOR UNKNOWN INDICATION
     Dosage: 10 MG, QD (MANE), LONG TERM
     Route: 048
  6. AMISULPRIDE [Concomitant]
     Active Substance: AMISULPRIDE
     Indication: PRODUCT USED FOR UNKNOWN INDICATION
     Dosage: 100 MG, BID, LONG TERM
     Route: 048

REACTIONS (31)
  - Diarrhoea [Unknown]
  - Blood creatinine increased [Unknown]
  - Gamma-glutamyltransferase increased [Unknown]
  - Atelectasis [Unknown]
  - Lung consolidation [Unknown]
  - Red cell distribution width increased [Unknown]
  - Abdominal tenderness [Unknown]
  - Lobar pneumonia [Unknown]
  - Sedation [Unknown]
  - Diverticulitis Meckel^s [Unknown]
  - Tubo-ovarian abscess [Unknown]
  - Pneumothorax [Unknown]
  - Gastrointestinal sounds abnormal [Unknown]
  - Cardiomegaly [Unknown]
  - Mean cell volume decreased [Unknown]
  - Localised intraabdominal fluid collection [Unknown]
  - Nausea [Unknown]
  - Haematocrit decreased [Unknown]
  - Blood albumin decreased [Unknown]
  - Appendicitis perforated [Unknown]
  - Blood lactate dehydrogenase increased [Unknown]
  - Haemoglobin decreased [Unknown]
  - Abdominal pain [Unknown]
  - Pleural effusion [Unknown]
  - Intestinal obstruction [Unknown]
  - Mean cell haemoglobin decreased [Unknown]
  - Acquired diaphragmatic eventration [Unknown]
  - Central obesity [Unknown]
  - Antipsychotic drug level above therapeutic [Unknown]
  - Blood glucose increased [Unknown]
  - Aspartate aminotransferase increased [Unknown]

NARRATIVE: CASE EVENT DATE: 20150127
